FAERS Safety Report 9649504 (Version 3)
Quarter: 2013Q4

REPORT INFORMATION
  Report Type: Spontaneous
  Country: JP (occurrence: JP)
  Receive Date: 20131028
  Receipt Date: 20131209
  Transmission Date: 20140711
  Serious: Yes (Other)
  Sender: FDA-Public Use
  Company Number: PHHY2013JP111908

PATIENT
  Age: 64 Year
  Sex: Male

DRUGS (3)
  1. TEGRETOL [Suspect]
     Indication: EPILEPSY
     Dosage: 600 MG, DAILY
     Route: 048
  2. VOLTARENE//DICLOFENAC SODIUM [Concomitant]
     Dosage: 50 MG, UNK
     Route: 054
     Dates: start: 20131002
  3. RISPERIDONE [Concomitant]
     Dosage: 1 MG, UNK
     Route: 048

REACTIONS (2)
  - Cholecystitis [Unknown]
  - Abdominal pain [Unknown]
